FAERS Safety Report 7962531-7 (Version None)
Quarter: 2011Q4

REPORT INFORMATION
  Report Type: 
  Country: None (occurrence: None)
  Receive Date: 20111207
  Receipt Date: 20111007
  Transmission Date: 20120403
  Serious: Yes (Other)
  Sender: FDA-Public Use
  Company Number: JP-GLAXOSMITHKLINE-B0754539A

PATIENT
  Sex: Male

DRUGS (8)
  1. LAMICTAL [Suspect]
     Indication: BIPOLAR II DISORDER
     Dosage: 25MG ALTERNATE DAYS
     Route: 048
     Dates: start: 20110323, end: 20110404
  2. DEPAKENE [Concomitant]
     Dosage: 600MG PER DAY
     Route: 048
     Dates: start: 20110405
  3. MAGMITT [Concomitant]
     Dosage: 660MG PER DAY
     Route: 048
  4. LAMICTAL [Suspect]
     Dosage: 25MG PER DAY
     Route: 048
     Dates: start: 20110405, end: 20110418
  5. CYMBALTA [Concomitant]
     Dosage: 60MG PER DAY
     Route: 048
  6. CLONAZEPAM [Concomitant]
     Dosage: 1MG PER DAY
     Route: 048
  7. LAMICTAL [Suspect]
     Dosage: 50MG PER DAY
     Route: 048
     Dates: start: 20110419, end: 20110501
  8. LAMICTAL [Suspect]
     Dosage: 75MG PER DAY
     Route: 048
     Dates: start: 20110502, end: 20110508

REACTIONS (3)
  - STOMATITIS [None]
  - BLISTER [None]
  - DERMATITIS BULLOUS [None]
